FAERS Safety Report 7724347-6 (Version None)
Quarter: 2011Q3

REPORT INFORMATION
  Report Type: 
  Country: None (occurrence: None)
  Receive Date: 20110829
  Receipt Date: 20110816
  Transmission Date: 20111222
  Serious: Yes (Life-Threatening, Other)
  Sender: FDA-Public Use
  Company Number: 1014332

PATIENT
  Age: 47 Year
  Sex: Male
  Weight: 130.9 kg

DRUGS (3)
  1. NIPENT [Suspect]
     Indication: CHRONIC LYMPHOCYTIC LEUKAEMIA
     Dosage: 4 MG/M2, DAY 1 OF WKS 1,5,9,13,17,21
     Dates: start: 20110411
  2. RITUXAN [Suspect]
     Indication: CHRONIC LYMPHOCYTIC LEUKAEMIA
     Dosage: 375 MG/M2 ON WEEKS 1,5,9,13,17,21 WEEK 1,3 DAYS/WEEK; WEEK 5-21, 1DAY/WEEK
     Dates: start: 20110411
  3. CYCLOPHOSPHAMIDE [Suspect]
     Indication: CHRONIC LYMPHOCYTIC LEUKAEMIA
     Dosage: 600 MG/M2, DAY 1 OF WEEKS 1,5,9,13,17,21,
     Dates: start: 20110411

REACTIONS (1)
  - LYMPHOPENIA [None]
